FAERS Safety Report 10195146 (Version 1)
Quarter: 2014Q2

REPORT INFORMATION
  Report Type: Spontaneous
  Country: IE (occurrence: IE)
  Receive Date: 20140526
  Receipt Date: 20140526
  Transmission Date: 20141212
  Serious: Yes (Hospitalization, Other)
  Sender: FDA-Public Use
  Company Number: IE-PFIZER INC-2014138563

PATIENT
  Age: 75 Year
  Sex: Male

DRUGS (10)
  1. INLYTA [Suspect]
     Dosage: 5 MG, 2X/DAY
     Dates: start: 201401, end: 20140203
  2. INLYTA [Suspect]
     Dosage: 7 MG, 2X/DAY
     Dates: start: 20140204, end: 20140210
  3. INLYTA [Suspect]
     Dosage: 5 MG, 2X/DAY
     Dates: start: 20140219, end: 20140220
  4. TELMISARTAN [Concomitant]
     Dosage: 40 MG, DAILY
  5. ATORVASTATIN [Concomitant]
     Dosage: 10 MG, DAILY
  6. MOMETASONE FUROATE MONOHYDRATE [Concomitant]
     Dosage: UNK, 2X/DAY
  7. LEVOCETIRIZINE [Concomitant]
     Dosage: 5 MG, DAILY
  8. BUDESONIDE/FORMOTEROL FUMARATE [Concomitant]
     Dosage: 200/6MCG, 2X/DAY
  9. ENALAPRIL MALEATE [Concomitant]
     Dosage: 10 MG, UNK
  10. (LERCAPRIL) [Concomitant]
     Dosage: 10 MG, UNK

REACTIONS (11)
  - Pyrexia [Unknown]
  - Chills [Unknown]
  - Myalgia [Unknown]
  - Headache [Recovered/Resolved]
  - Influenza [Unknown]
  - Posterior reversible encephalopathy syndrome [Unknown]
  - Back pain [Unknown]
  - Diarrhoea [Unknown]
  - Cognitive disorder [Unknown]
  - Hallucination, visual [Unknown]
  - Hypertension [Unknown]
